FAERS Safety Report 26037743 (Version 1)
Quarter: 2025Q4

REPORT INFORMATION
  Report Type: Spontaneous
  Country: US (occurrence: US)
  Receive Date: 20251112
  Receipt Date: 20251112
  Transmission Date: 20260119
  Serious: No
  Sender: BRACCO
  Company Number: US-BRACCO-2024US06391

PATIENT
  Age: 59 Year
  Sex: Female

DRUGS (16)
  1. LUMASON [Suspect]
     Active Substance: SULFUR HEXAFLUORIDE
     Indication: Echocardiogram
     Dosage: 2 ML, SINGLE
     Route: 042
     Dates: start: 20241008, end: 20241008
  2. LUMASON [Suspect]
     Active Substance: SULFUR HEXAFLUORIDE
     Indication: Echocardiogram
     Dosage: 2 ML, SINGLE
     Route: 042
     Dates: start: 20241008, end: 20241008
  3. LUMASON [Suspect]
     Active Substance: SULFUR HEXAFLUORIDE
     Indication: Echocardiogram
     Dosage: 2 ML, SINGLE
     Route: 042
     Dates: start: 20241008, end: 20241008
  4. ALBUTEROL [Concomitant]
     Active Substance: ALBUTEROL
  5. ASPIRIN [Concomitant]
     Active Substance: ASPIRIN
  6. COZAAR [Concomitant]
     Active Substance: LOSARTAN POTASSIUM
  7. CRESTOR [Concomitant]
     Active Substance: ROSUVASTATIN CALCIUM
  8. CYMBALTA [Concomitant]
     Active Substance: DULOXETINE HYDROCHLORIDE
  9. DIFLUCAN [Concomitant]
     Active Substance: FLUCONAZOLE
  10. INSULIN NOS [Concomitant]
     Active Substance: INSULIN NOS
  11. JARDIANCE [Concomitant]
     Active Substance: EMPAGLIFLOZIN
  12. LASIX [Concomitant]
     Active Substance: FUROSEMIDE
  13. PREVACID [Concomitant]
     Active Substance: LANSOPRAZOLE
  14. SINGULAIR [Concomitant]
     Active Substance: MONTELUKAST SODIUM
  15. TOPROL XL [Concomitant]
     Active Substance: METOPROLOL SUCCINATE
  16. ZETIA [Concomitant]
     Active Substance: EZETIMIBE

REACTIONS (2)
  - Agitation [Recovered/Resolved]
  - Erythema [Recovered/Resolved]

NARRATIVE: CASE EVENT DATE: 20241008
